FAERS Safety Report 9256909 (Version 2)
Quarter: 2013Q3

REPORT INFORMATION
  Report Type: Spontaneous
  Country: US (occurrence: US)
  Receive Date: 20130426
  Receipt Date: 20130705
  Transmission Date: 20140515
  Serious: Yes (Disabling, Other)
  Sender: FDA-Public Use
  Company Number: US-ASTRAZENECA-2013SE27784

PATIENT
  Age: 22726 Day
  Sex: Male
  Weight: 102.1 kg

DRUGS (32)
  1. NEXIUM [Suspect]
     Indication: DYSPEPSIA
     Route: 048
     Dates: start: 20070727
  2. LORTAB [Concomitant]
     Dosage: 5/500
     Dates: start: 20080807
  3. LUPRON [Concomitant]
  4. CIPRO [Concomitant]
     Route: 048
  5. PYRIDIUM [Concomitant]
  6. SPIRIVA [Concomitant]
     Dosage: 180 MCG, 1 PUFF DAILY
     Dates: start: 20080807
  7. MEDROL [Concomitant]
     Route: 048
     Dates: start: 20080523
  8. MEDROL [Concomitant]
     Route: 048
     Dates: start: 20120223
  9. NEURONTIN [Concomitant]
     Route: 048
     Dates: start: 20110208
  10. ALBUTEROL [Concomitant]
     Indication: DYSPNOEA
     Dosage: 2 PUFFS EVERY 4 HOURS PRN
  11. AMBIEN [Concomitant]
     Dates: start: 20110208
  12. METOPROLOL [Concomitant]
     Route: 048
     Dates: start: 20080523
  13. MORPHINE [Concomitant]
     Indication: PAIN
     Route: 048
     Dates: start: 20110208
  14. OXYCONTIN [Concomitant]
     Route: 048
     Dates: start: 20120312
  15. OXYCONTIN [Concomitant]
     Route: 048
     Dates: start: 20120223
  16. NUCYNTA [Concomitant]
     Route: 048
     Dates: start: 20120223
  17. COLACE [Concomitant]
     Route: 048
     Dates: start: 20120326
  18. MIRTAZAPINE [Concomitant]
     Route: 048
     Dates: start: 20030604
  19. ZYPREXA [Concomitant]
     Route: 048
     Dates: start: 20030604
  20. TRILEPTAL [Concomitant]
     Dosage: 1 TABLET EVERY MORNING AND 2 TABLETS EVERY EVENING
     Route: 048
     Dates: start: 20030604
  21. METRONIDAZOLE [Concomitant]
     Route: 048
     Dates: start: 20060305
  22. PROMETHAZINE [Concomitant]
     Indication: NAUSEA
     Dosage: 1 TO 2 TABLET EVERY SIX HOURS
     Route: 048
     Dates: start: 20060305
  23. AMLODIPINE BESYLATE [Concomitant]
     Dates: start: 20080523
  24. BENZONATATE [Concomitant]
     Dates: start: 20080523
  25. AVELOX [Concomitant]
     Dates: start: 20080523
  26. IPRATROPIUM BROMIDE [Concomitant]
     Dates: start: 20080523
  27. XOPENEX [Concomitant]
     Dosage: 1.25 MG/3 ML
     Dates: start: 20080523
  28. THEOPHYLLINE [Concomitant]
     Dates: start: 20080523
  29. ZOLPIDEM TARTRATE [Concomitant]
     Dates: start: 20080523
  30. PREDNISONE [Concomitant]
     Dates: start: 20080807
  31. LEVAQUIN [Concomitant]
     Dates: start: 20091205
  32. CEPHALEXIN [Concomitant]
     Dates: start: 20100607

REACTIONS (13)
  - Neoplasm malignant [Unknown]
  - Prostate cancer [Unknown]
  - Craniocerebral injury [Unknown]
  - Cervical vertebral fracture [Unknown]
  - Osteoporosis [Unknown]
  - Bone disorder [Unknown]
  - Arthritis [Unknown]
  - Chronic obstructive pulmonary disease [Unknown]
  - Osteoarthritis [Unknown]
  - Multiple fractures [Unknown]
  - Ankle fracture [Unknown]
  - Vitamin D deficiency [Unknown]
  - Depression [Unknown]
